FAERS Safety Report 5119346-7 (Version None)
Quarter: 2006Q4

REPORT INFORMATION
  Report Type: 
  Country: None (occurrence: None)
  Receive Date: 20061003
  Receipt Date: 20060926
  Transmission Date: 20070319
  Serious: Yes (Death)
  Sender: FDA-Public Use
  Company Number: PHHO2006SG16008

PATIENT
  Age: 69 Year
  Sex: Male

DRUGS (9)
  1. RIVASTIGMINE VS PLACEBO [Suspect]
     Indication: COGNITIVE DISORDER
     Dosage: 3 MG, BID
     Route: 048
  2. ASPIRIN [Suspect]
     Indication: CEREBROVASCULAR ACCIDENT
  3. OMEPRAZOLE [Suspect]
     Indication: CEREBROVASCULAR ACCIDENT
  4. DIGOXIN [Suspect]
     Indication: MYOCARDIAL ISCHAEMIA
  5. CAPTOPRIL [Suspect]
     Indication: HYPERTENSION
  6. AMLODIPINE [Suspect]
     Indication: HYPERTENSION
  7. SPIRONOLACTONE [Suspect]
     Indication: MYOCARDIAL ISCHAEMIA
  8. SIMVASTATIN [Suspect]
     Indication: HYPERLIPIDAEMIA
  9. FUROSEMIDE [Suspect]
     Indication: MYOCARDIAL ISCHAEMIA

REACTIONS (1)
  - CIRCULATORY COLLAPSE [None]
